FAERS Safety Report 20654919 (Version 2)
Quarter: 2022Q2

REPORT INFORMATION
  Report Type: Spontaneous
  Country: US (occurrence: None)
  Receive Date: 20220330
  Receipt Date: 20220427
  Transmission Date: 20220721
  Serious: No
  Sender: FDA-Public Use
  Company Number: 2022A095134

PATIENT
  Sex: Female
  Weight: 122.9 kg

DRUGS (1)
  1. BYDUREON BCISE [Suspect]
     Active Substance: EXENATIDE
     Indication: Type 2 diabetes mellitus
     Route: 065
     Dates: start: 2000

REACTIONS (3)
  - Weight decreased [Unknown]
  - Incorrect dose administered by device [Unknown]
  - Device malfunction [Unknown]
